FAERS Safety Report 13134934 (Version 6)
Quarter: 2018Q1

REPORT INFORMATION
  Report Type: Spontaneous
  Country: DE (occurrence: DE)
  Receive Date: 20170120
  Receipt Date: 20180302
  Transmission Date: 20180508
  Serious: Yes (Hospitalization, Other)
  Sender: FDA-Public Use
  Company Number: DE-SA-2017SA008714

PATIENT
  Age: 25 Year
  Sex: Female

DRUGS (2)
  1. FINGOLIMOD. [Concomitant]
     Active Substance: FINGOLIMOD
  2. LEMTRADA [Suspect]
     Active Substance: ALEMTUZUMAB
     Indication: MULTIPLE SCLEROSIS
     Route: 041
     Dates: start: 20141201, end: 20141205

REACTIONS (6)
  - Hypoaesthesia [Not Recovered/Not Resolved]
  - Nervous system disorder [Not Recovered/Not Resolved]
  - Ataxia [Not Recovered/Not Resolved]
  - Quadriparesis [Not Recovered/Not Resolved]
  - Central nervous system inflammation [Not Recovered/Not Resolved]
  - Nuclear magnetic resonance imaging abnormal [Not Recovered/Not Resolved]
